FAERS Safety Report 5900824-5 (Version None)
Quarter: 2008Q3

REPORT INFORMATION
  Report Type: 
  Country: None (occurrence: None)
  Receive Date: 20080923
  Receipt Date: 20080723
  Transmission Date: 20090109
  Serious: Yes (Other)
  Sender: FDA-Public Use
  Company Number: THYM-1000734

PATIENT
  Age: 26 Year
  Sex: Male
  Weight: 83 kg

DRUGS (7)
  1. THYMOGLOBULIN [Suspect]
     Indication: APLASTIC ANAEMIA
     Dosage: 300 MG, QD, INTRAVENOUS
     Route: 042
     Dates: start: 20080721
  2. CHLORPHENAMINE (PARACETAMOL, PHENYLPROPANOLAMINE) [Concomitant]
  3. DOMEPERIDONE (DOMPERIDONE) [Concomitant]
  4. NYSTATIN [Concomitant]
  5. CORDOSYL (CHLORHEXIDINE GLUCONATE) [Concomitant]
  6. VALACICLOVIR (VALACICLOVIR HYDROCHLORIDE) [Concomitant]
  7. CO-TRIAMZOLE (SULFAMETHOXAZOLE, TRIMETHOPRIM) [Concomitant]

REACTIONS (6)
  - CATHETER SEPSIS [None]
  - HYPOTENSION [None]
  - INFUSION RELATED REACTION [None]
  - SERUM SICKNESS [None]
  - STAPHYLOCOCCAL INFECTION [None]
  - STAPHYLOCOCCAL SEPSIS [None]
